FAERS Safety Report 22917056 (Version 8)
Quarter: 2024Q3

REPORT INFORMATION
  Report Type: Spontaneous
  Country: IN (occurrence: IN)
  Receive Date: 20230907
  Receipt Date: 20240924
  Transmission Date: 20241017
  Serious: Yes (Other)
  Sender: PFIZER
  Company Number: IN-PFIZER INC-PV202200017165

PATIENT
  Age: 63 Year
  Sex: Male

DRUGS (2)
  1. LORLATINIB [Suspect]
     Active Substance: LORLATINIB
     Indication: Non-small cell lung cancer
     Dosage: 100 MG, 1X/DAY
     Route: 048
  2. GRANICIP [Concomitant]
     Indication: Vomiting
     Dosage: 1 MG, AS NEEDED (BEFORE MEALS, MAXIMUM TWICE A DAY)

REACTIONS (10)
  - Blood pressure systolic increased [Recovered/Resolved]
  - Respiratory rate increased [Recovered/Resolved]
  - Illness [Unknown]
  - Cough [Unknown]
  - Protein urine present [Not Recovered/Not Resolved]
  - Lipids abnormal [Unknown]
  - Thyroid disorder [Unknown]
  - Glycosylated haemoglobin increased [Unknown]
  - Weight increased [Recovered/Resolved]
  - Haematuria [Not Recovered/Not Resolved]

NARRATIVE: CASE EVENT DATE: 20230508
